FAERS Safety Report 8399383-X (Version None)
Quarter: 2012Q2

REPORT INFORMATION
  Report Type: 
  Country: None (occurrence: None)
  Receive Date: 20120525
  Receipt Date: 20120514
  Transmission Date: 20120825
  Serious: Yes (Hospitalization)
  Sender: FDA-Public Use
  Company Number: 2012MA006117

PATIENT
  Age: 7 Year
  Sex: Male

DRUGS (1)
  1. DILTIAZEM HYDROCHLORIDE [Suspect]

REACTIONS (15)
  - MULTI-ORGAN FAILURE [None]
  - VOMITING [None]
  - HYPOTENSION [None]
  - TREMOR [None]
  - IRRITABILITY [None]
  - SOMNOLENCE [None]
  - MUCOUS MEMBRANE DISORDER [None]
  - ACIDOSIS [None]
  - DIABETIC KETOACIDOSIS [None]
  - FATIGUE [None]
  - SLUGGISHNESS [None]
  - BRADYCARDIA [None]
  - HYPERGLYCAEMIA [None]
  - BODY TEMPERATURE INCREASED [None]
  - METABOLIC ACIDOSIS [None]
